FAERS Safety Report 24067928 (Version 2)
Quarter: 2024Q3

REPORT INFORMATION
  Report Type: Report from Study
  Country: US (occurrence: US)
  Receive Date: 20240710
  Receipt Date: 20240827
  Transmission Date: 20241017
  Serious: Yes (Hospitalization)
  Sender: JOHNSON AND JOHNSON
  Company Number: US-JNJFOC-20240429588

PATIENT
  Age: 68 Year
  Sex: Male
  Weight: 86.4 kg

DRUGS (12)
  1. EPOPROSTENOL SODIUM [Suspect]
     Active Substance: EPOPROSTENOL SODIUM
     Indication: Pulmonary hypertension
     Route: 042
     Dates: start: 20240312
  2. TYVASO [Suspect]
     Active Substance: TREPROSTINIL
     Indication: Pulmonary hypertension
     Dosage: 54 QID
     Route: 055
  3. TYVASO [Suspect]
     Active Substance: TREPROSTINIL
     Dosage: 72 QID
     Route: 055
  4. TYVASO [Suspect]
     Active Substance: TREPROSTINIL
     Route: 055
     Dates: start: 20230104, end: 2024
  5. SILDENAFIL CITRATE [Concomitant]
     Active Substance: SILDENAFIL CITRATE
  6. FUROSEMIDE [Concomitant]
     Active Substance: FUROSEMIDE
  7. FAMOTIDINE [Concomitant]
     Active Substance: FAMOTIDINE
  8. TYLENOL [Concomitant]
     Active Substance: ACETAMINOPHEN
  9. PRADAXA [Concomitant]
     Active Substance: DABIGATRAN ETEXILATE MESYLATE
  10. SILDENAFIL CITRATE [Concomitant]
     Active Substance: SILDENAFIL CITRATE
  11. OXYGEN [Concomitant]
     Active Substance: OXYGEN
  12. LUNESTA [Concomitant]
     Active Substance: ESZOPICLONE

REACTIONS (3)
  - Vomiting [Unknown]
  - Diarrhoea [Unknown]
  - Retching [Unknown]

NARRATIVE: CASE EVENT DATE: 20240312
